FAERS Safety Report 14272112 (Version 5)
Quarter: 2019Q1

REPORT INFORMATION
  Report Type: Spontaneous
  Country: US (occurrence: US)
  Receive Date: 20171211
  Receipt Date: 20190313
  Transmission Date: 20190417
  Serious: No
  Sender: FDA-Public Use
  Company Number: US-ACTELION-A-NJ2017-161265

PATIENT
  Age: 50 Year
  Sex: Female
  Weight: 64.85 kg

DRUGS (5)
  1. VELETRI [Suspect]
     Active Substance: EPOPROSTENOL
     Indication: PULMONARY ARTERIAL HYPERTENSION
     Dosage: 7 NG/KG, PER MIN
     Route: 042
  2. LETAIRIS [Suspect]
     Active Substance: AMBRISENTAN
     Indication: PRODUCT USED FOR UNKNOWN INDICATION
     Route: 065
  3. VELETRI [Suspect]
     Active Substance: EPOPROSTENOL
     Dosage: 20 NG/KG, PER MIN
     Route: 042
  4. VELETRI [Suspect]
     Active Substance: EPOPROSTENOL
     Dosage: UNK
     Route: 042
  5. SILDENAFIL. [Concomitant]
     Active Substance: SILDENAFIL
     Dosage: 20 MG, TID

REACTIONS (31)
  - Decreased appetite [Recovering/Resolving]
  - Product storage error [Unknown]
  - Palpitations [Recovered/Resolved]
  - Chest discomfort [Unknown]
  - Gallbladder polyp [Not Recovered/Not Resolved]
  - Pain in jaw [Not Recovered/Not Resolved]
  - Application site irritation [Unknown]
  - Amnesia [Unknown]
  - Incorrect drug administration rate [Recovered/Resolved]
  - Vomiting [Recovering/Resolving]
  - Malaise [Recovered/Resolved]
  - Nausea [Not Recovered/Not Resolved]
  - Diarrhoea [Not Recovered/Not Resolved]
  - Syncope [Recovered/Resolved]
  - Crying [Recovered/Resolved]
  - Dyspnoea [Unknown]
  - Loss of personal independence in daily activities [Not Recovered/Not Resolved]
  - Influenza like illness [Unknown]
  - Fear [Recovered/Resolved]
  - Nasal congestion [Not Recovered/Not Resolved]
  - Application site pruritus [Unknown]
  - Abdominal pain upper [Unknown]
  - Joint swelling [Unknown]
  - Headache [Unknown]
  - Chest pain [Recovered/Resolved]
  - Application site vesicles [Unknown]
  - Flushing [Unknown]
  - Pain in extremity [Not Recovered/Not Resolved]
  - Cholelithiasis [Not Recovered/Not Resolved]
  - Dyspnoea exertional [Not Recovered/Not Resolved]
  - Burning sensation [Unknown]

NARRATIVE: CASE EVENT DATE: 201709
